FAERS Safety Report 11358817 (Version 1)
Quarter: 2015Q3

REPORT INFORMATION
  Report Type: Spontaneous
  Country: US (occurrence: None)
  Receive Date: 20150710
  Receipt Date: 20150710
  Transmission Date: 20151125
  Serious: Yes (Hospitalization, Other)
  Sender: FDA-Public Use
  Company Number: US-2014-11466

PATIENT
  Age: 89 Year
  Sex: Female

DRUGS (19)
  1. DIGOXIN. [Concomitant]
     Active Substance: DIGOXIN
  2. DONEPEZIL. [Concomitant]
     Active Substance: DONEPEZIL
  3. PERCOCET (PARACETAMOL, OXYCODONE HYDROCHLORIDE, OXYCODONE TEREPHTHALATE) [Concomitant]
  4. VALTREX [Concomitant]
     Active Substance: VALACYCLOVIR HYDROCHLORIDE
  5. ZOFRAN (ONDANSETRON) [Concomitant]
  6. CALCIUM [Concomitant]
     Active Substance: CALCIUM
  7. DOCUSATE [Concomitant]
     Active Substance: DOCUSATE
  8. DETROL LA [Concomitant]
     Active Substance: TOLTERODINE TARTRATE
  9. LASIX [Concomitant]
     Active Substance: FUROSEMIDE
  10. LOSARTAN. [Concomitant]
     Active Substance: LOSARTAN
  11. TOPROL XL (METOPROLOL SUCCINATE) [Concomitant]
  12. SAMSCA [Suspect]
     Active Substance: TOLVAPTAN
     Indication: BLOOD SODIUM DECREASED
     Route: 048
     Dates: start: 20140618
  13. POTASSIUM [Concomitant]
     Active Substance: POTASSIUM
  14. OXYBUTYNIN (OXYBUTYNIN HYDROCHLORIDE) [Concomitant]
  15. AMBIEN [Concomitant]
     Active Substance: ZOLPIDEM TARTRATE
  16. MORPHINE [Concomitant]
     Active Substance: MORPHINE
  17. MAXZIDE (HYDROCHLOROTHIAZIDE, TRIAMTERENE) [Concomitant]
  18. ATORVASTATIN [Concomitant]
     Active Substance: ATORVASTATIN
  19. PROTONIX [Concomitant]
     Active Substance: PANTOPRAZOLE SODIUM

REACTIONS (1)
  - Rapid correction of hyponatraemia [None]
